FAERS Safety Report 24034904 (Version 2)
Quarter: 2024Q4

REPORT INFORMATION
  Report Type: Spontaneous
  Country: BR (occurrence: BR)
  Receive Date: 20240701
  Receipt Date: 20241225
  Transmission Date: 20250115
  Serious: Yes (Hospitalization)
  Sender: ORPHALAN
  Company Number: BR-ORPHALAN-BR-ORP-24-00105

PATIENT

DRUGS (1)
  1. TRIENTINE TETRAHYDROCHLORIDE [Suspect]
     Active Substance: TRIENTINE TETRAHYDROCHLORIDE
     Indication: Hepato-lenticular degeneration
     Dosage: UNK
     Route: 065

REACTIONS (1)
  - Myocardial infarction [Recovered/Resolved]

NARRATIVE: CASE EVENT DATE: 20240401
